FAERS Safety Report 16550988 (Version 1)
Quarter: 2019Q3

REPORT INFORMATION
  Report Type: Spontaneous
  Country: US (occurrence: US)
  Receive Date: 20190710
  Receipt Date: 20190710
  Transmission Date: 20191004
  Serious: No
  Sender: FDA-Public Use
  Company Number: US-AUROBINDO-AUR-APL-2019-018533

PATIENT

DRUGS (1)
  1. TULANA [Suspect]
     Active Substance: NORETHINDRONE
     Indication: PRODUCT USED FOR UNKNOWN INDICATION
     Dosage: UNK, 1 TABLET TAKEN EVERY DAY, AT SAME TIME
     Route: 065

REACTIONS (2)
  - Polymenorrhoea [Unknown]
  - Metrorrhagia [Unknown]
